FAERS Safety Report 12663979 (Version 1)
Quarter: 2016Q3

REPORT INFORMATION
  Report Type: Spontaneous
  Country: US (occurrence: US)
  Receive Date: 20160818
  Receipt Date: 20160818
  Transmission Date: 20161109
  Serious: No
  Sender: FDA-Public Use
  Company Number: US-MISSION PHARMACAL COMPANY-1056472

PATIENT
  Age: 52 Year
  Sex: Male

DRUGS (3)
  1. BENADRYL [Concomitant]
     Active Substance: DIPHENHYDRAMINE HYDROCHLORIDE
     Route: 065
  2. THIOLA [Suspect]
     Active Substance: TIOPRONIN
     Indication: CYSTINURIA
     Route: 065
     Dates: start: 20160714
  3. THIOLA [Suspect]
     Active Substance: TIOPRONIN
     Route: 065
     Dates: start: 20160714

REACTIONS (6)
  - Fatigue [Unknown]
  - Visual impairment [Unknown]
  - Dehydration [Unknown]
  - Pharyngeal oedema [Unknown]
  - Presyncope [Unknown]
  - Vomiting [Unknown]
